FAERS Safety Report 25544526 (Version 1)
Quarter: 2025Q3

REPORT INFORMATION
  Report Type: Spontaneous
  Country: US (occurrence: US)
  Receive Date: 20250711
  Receipt Date: 20250711
  Transmission Date: 20251021
  Serious: No
  Sender: ETHYPHARM
  Company Number: US-ETHYPHARM-2025001920

PATIENT
  Age: 19 Year
  Sex: Male
  Weight: 67.9 kg

DRUGS (14)
  1. BUPRENORPHINE [Suspect]
     Active Substance: BUPRENORPHINE
     Indication: Pain
     Dosage: DAY 1:225 MCG BUCCAL ONCE DAILY
     Route: 002
  2. BUPRENORPHINE [Suspect]
     Active Substance: BUPRENORPHINE
     Indication: Pain
     Dosage: DAY 2: 225 MCG BUCCAL TWICE DAILY
     Route: 002
  3. BUPRENORPHINE [Suspect]
     Active Substance: BUPRENORPHINE
     Indication: Pain
     Dosage: DAY 3 :450 MCG BUCCAL TWICE DAILY
     Route: 002
  4. BUPRENORPHINE [Suspect]
     Active Substance: BUPRENORPHINE
     Indication: Pain
     Dosage: DAY 4: 2 MG SUBLINGUAL TWICE DAILY
     Route: 060
  5. BUPRENORPHINE [Suspect]
     Active Substance: BUPRENORPHINE
     Indication: Pain
     Dosage: DAY 5: 4 MG SUBLINGUAL TWICE DAILY
     Route: 060
  6. BUPRENORPHINE [Suspect]
     Active Substance: BUPRENORPHINE
     Indication: Pain
     Dosage: DAY 6: 4 MG SUBLINGUAL THREE TIMES DAILY
     Route: 060
  7. BUPRENORPHINE [Suspect]
     Active Substance: BUPRENORPHINE
     Indication: Pain
     Dosage: DAY 7:  4 MG SUBLINGUAL FOUR TIMES DAY
     Route: 060
  8. FENTANYL [Concomitant]
     Active Substance: FENTANYL
     Indication: Pain
     Dosage: 100 MCG/ HOUR
  9. HYDROMORPHONE [Concomitant]
     Active Substance: HYDROMORPHONE
     Indication: Pain
  10. ACETAMINOPHEN [Concomitant]
     Active Substance: ACETAMINOPHEN
     Indication: Pain
  11. PREGABALIN [Concomitant]
     Active Substance: PREGABALIN
     Indication: Pain
  12. CLONIDINE [Concomitant]
     Active Substance: CLONIDINE
     Indication: Pain
  13. KETAMINE [Concomitant]
     Active Substance: KETAMINE
     Indication: Pain
  14. THC [Concomitant]
     Indication: Pain

REACTIONS (2)
  - Off label use [Unknown]
  - Drug effective for unapproved indication [Unknown]
